FAERS Safety Report 4655404-9 (Version None)
Quarter: 2005Q2

REPORT INFORMATION
  Report Type: 
  Country: None (occurrence: None)
  Receive Date: 20050506
  Receipt Date: 20050502
  Transmission Date: 20051028
  Serious: Yes (Hospitalization, Disabling)
  Sender: FDA-Public Use
  Company Number: US-ABBOTT-05P-163-0299048-00

PATIENT
  Sex: Female
  Weight: 90.8 kg

DRUGS (4)
  1. SYNTHROID [Suspect]
     Indication: HORMONE REPLACEMENT THERAPY
     Route: 048
     Dates: start: 19860101, end: 20050211
  2. SYNTHROID [Suspect]
     Route: 048
     Dates: start: 19850101, end: 19860101
  3. VERAPAMIL HYDROCHLORIDE [Concomitant]
     Indication: CARDIAC DISORDER
     Route: 048
     Dates: start: 19990101
  4. ACARBOSE [Concomitant]
     Indication: DIABETES MELLITUS NON-INSULIN-DEPENDENT
     Route: 048
     Dates: start: 19910101

REACTIONS (5)
  - BREAST CANCER [None]
  - ENDOMETRIAL CANCER [None]
  - GLOMUS TUMOUR [None]
  - PAPILLARY THYROID CANCER [None]
  - VOCAL CORD PARALYSIS [None]
